FAERS Safety Report 20181271 (Version 1)
Quarter: 2021Q4

REPORT INFORMATION
  Report Type: Spontaneous
  Country: US (occurrence: None)
  Receive Date: 20211213
  Receipt Date: 20211213
  Transmission Date: 20220303
  Serious: No
  Sender: FDA-Public Use
  Company Number: None

PATIENT
  Age: 66 Year
  Sex: Male
  Weight: 74.25 kg

DRUGS (1)
  1. ROSUVASTATIN [Suspect]
     Active Substance: ROSUVASTATIN
     Indication: Low density lipoprotein
     Dosage: FREQUENCY : AT BEDTIME;?
     Route: 048

REACTIONS (2)
  - Muscle spasms [None]
  - Paraesthesia [None]

NARRATIVE: CASE EVENT DATE: 20211201
